FAERS Safety Report 7118091-6 (Version None)
Quarter: 2010Q4

REPORT INFORMATION
  Report Type: 
  Country: None (occurrence: None)
  Receive Date: 20101123
  Receipt Date: 20100805
  Transmission Date: 20110411
  Serious: Yes (Hospitalization, Other)
  Sender: FDA-Public Use
  Company Number: US-BAYER-201024763NA

PATIENT
  Age: 24 Year
  Sex: Female
  Weight: 57 kg

DRUGS (7)
  1. YAZ [Suspect]
     Indication: CONTRACEPTION
     Route: 048
     Dates: start: 20080304, end: 20080516
  2. YASMIN [Suspect]
     Indication: CONTRACEPTION
  3. ZOLOFT [Concomitant]
     Dates: start: 20020101
  4. NAPROXEN [Concomitant]
     Indication: BACK PAIN
  5. PERCOCET [Concomitant]
     Indication: BACK PAIN
  6. ALEVE (CAPLET) [Concomitant]
  7. METHOCARBAMOL [Concomitant]

REACTIONS (5)
  - BACK PAIN [None]
  - DEEP VEIN THROMBOSIS [None]
  - DYSPNOEA [None]
  - MUSCULOSKELETAL CHEST PAIN [None]
  - PULMONARY EMBOLISM [None]
